FAERS Safety Report 18230799 (Version 2)
Quarter: 2025Q4

REPORT INFORMATION
  Report Type: Spontaneous
  Country: US (occurrence: US)
  Receive Date: 20200904
  Receipt Date: 20251022
  Transmission Date: 20260117
  Serious: Yes (Other)
  Sender: ALKEM
  Company Number: None

PATIENT
  Age: 34 Year
  Sex: Male

DRUGS (5)
  1. MYCOPHENOLATE MOFETIL [Suspect]
     Active Substance: MYCOPHENOLATE MOFETIL
     Indication: Vogt-Koyanagi-Harada disease
     Dosage: 500 MILLIGRAM, BID
     Route: 065
  2. TRIAMCINOLONE ACETONIDE [Suspect]
     Active Substance: TRIAMCINOLONE ACETONIDE
     Indication: Vogt-Koyanagi-Harada disease
     Dosage: UNK (TWO INJECTIONS)
     Route: 065
  3. ADALIMUMAB [Suspect]
     Active Substance: ADALIMUMAB
     Indication: Vogt-Koyanagi-Harada disease
     Dosage: UNK (SIX TREATMENTS)
     Route: 058
  4. PREDNISOLONE ACETATE [Concomitant]
     Active Substance: PREDNISOLONE ACETATE
     Indication: Vogt-Koyanagi-Harada disease
     Dosage: UNK, TID
     Route: 065
  5. PREDNISONE [Concomitant]
     Active Substance: PREDNISONE
     Indication: Vogt-Koyanagi-Harada disease
     Dosage: 25 MILLIGRAM, QD
     Route: 065

REACTIONS (7)
  - Cataract [Recovered/Resolved]
  - Cystoid macular oedema [Recovered/Resolved]
  - Drug-induced liver injury [Unknown]
  - Condition aggravated [Recovered/Resolved]
  - Liver function test increased [Unknown]
  - Drug ineffective [Unknown]
  - Eye pain [Recovered/Resolved]
